FAERS Safety Report 6208435-1 (Version None)
Quarter: 2009Q2

REPORT INFORMATION
  Report Type: 
  Country: None (occurrence: None)
  Receive Date: 20090529
  Receipt Date: 20090519
  Transmission Date: 20091009
  Serious: Yes (Other)
  Sender: FDA-Public Use
  Company Number: US-ELI_LILLY_AND_COMPANY-US200904000867

PATIENT
  Sex: Female

DRUGS (7)
  1. CYMBALTA [Suspect]
     Dosage: 60 MG, UNK
     Route: 048
  2. NEURONTIN [Concomitant]
     Dosage: 800 MG, UNK
  3. NORCO [Concomitant]
     Dosage: 10 MG, UNK
  4. AVINZA [Concomitant]
  5. LYRICA [Concomitant]
  6. TOPAMAX [Concomitant]
  7. AMITRIPTLINE HYDROCHLORIDE TAB [Concomitant]

REACTIONS (2)
  - SEROTONIN SYNDROME [None]
  - TRANSAMINASES INCREASED [None]
